FAERS Safety Report 5877911-3 (Version None)
Quarter: 2008Q3

REPORT INFORMATION
  Report Type: 
  Country: None (occurrence: None)
  Receive Date: 20080911
  Receipt Date: 20080905
  Transmission Date: 20090109
  Serious: Yes (Life-Threatening, Hospitalization, Other)
  Sender: FDA-Public Use
  Company Number: A0746646A

PATIENT
  Age: 8 Month
  Sex: Female

DRUGS (1)
  1. VENTOLIN [Suspect]
     Indication: DRUG USE FOR UNKNOWN INDICATION
     Dosage: 2PUFF THREE TIMES PER DAY
     Route: 055
     Dates: start: 20080624, end: 20080626

REACTIONS (1)
  - VASCULITIS [None]
